FAERS Safety Report 14306242 (Version 1)
Quarter: 2017Q4

REPORT INFORMATION
  Report Type: Spontaneous
  Country: BR (occurrence: BR)
  Receive Date: 20171219
  Receipt Date: 20171219
  Transmission Date: 20180321
  Serious: Yes (Hospitalization)
  Sender: FDA-Public Use
  Company Number: BR-ABBVIE-17S-020-2195514-00

PATIENT
  Age: 49 Year
  Sex: Female

DRUGS (5)
  1. LEVOTHYROXINE SODIUM. [Concomitant]
     Active Substance: LEVOTHYROXINE SODIUM
     Indication: HYPOTHYROIDISM
     Route: 048
     Dates: start: 2007
  2. ANDROGEL [Suspect]
     Active Substance: TESTOSTERONE
     Indication: HORMONE REPLACEMENT THERAPY
     Dosage: 1 SACHET DAILY (1 SACHET,1 IN 1 D)
     Route: 061
     Dates: start: 20171124, end: 20171124
  3. VITAMIN C [Concomitant]
     Active Substance: ASCORBIC ACID
     Indication: PRODUCT USED FOR UNKNOWN INDICATION
     Route: 065
  4. VITAMIN A [Concomitant]
     Active Substance: VITAMIN A
     Indication: VITAMIN SUPPLEMENTATION
     Dosage: 1 CAPSULE DAILY
     Route: 048
     Dates: start: 2007
  5. COLLAGEN [Concomitant]
     Active Substance: COLLAGEN
     Indication: SUPPLEMENTATION THERAPY
     Dosage: 1 CAPSULE DAILY
     Route: 048
     Dates: start: 2007

REACTIONS (2)
  - Off label use [Recovered/Resolved]
  - Arrhythmia [Recovered/Resolved]

NARRATIVE: CASE EVENT DATE: 20171124
